FAERS Safety Report 14313782 (Version 2)
Quarter: 2018Q1

REPORT INFORMATION
  Report Type: Spontaneous
  Country: BR (occurrence: BR)
  Receive Date: 20171221
  Receipt Date: 20180112
  Transmission Date: 20180509
  Serious: Yes (Other)
  Sender: FDA-Public Use
  Company Number: PHHY2017BR184714

PATIENT
  Age: 4 Year
  Sex: Female
  Weight: 19 kg

DRUGS (4)
  1. HISTAMIN (HISTAMINE) [Suspect]
     Active Substance: HISTAMINE
     Indication: PHARYNGEAL OEDEMA
     Dosage: UNK UNK, Q8H FOR 10 DAYS
     Route: 065
  2. AMOXICILLIN + CLAVULANATE POTASSIUM [Suspect]
     Active Substance: AMOXICILLIN\CLAVULANATE POTASSIUM
     Indication: PHARYNGITIS
     Dosage: 6 ML, Q8H
     Route: 048
     Dates: start: 201711, end: 20171211
  3. AMOXICILLIN + CLAVULANATE POTASSIUM [Suspect]
     Active Substance: AMOXICILLIN\CLAVULANATE POTASSIUM
     Indication: VOMITING
  4. AMOXICILLIN + CLAVULANATE POTASSIUM [Suspect]
     Active Substance: AMOXICILLIN\CLAVULANATE POTASSIUM
     Indication: OROPHARYNGEAL PAIN

REACTIONS (4)
  - Pyrexia [Recovering/Resolving]
  - Pharyngeal oedema [Recovered/Resolved]
  - Product storage error [Unknown]
  - Catarrh [Recovering/Resolving]

NARRATIVE: CASE EVENT DATE: 20171208
